FAERS Safety Report 12262633 (Version 4)
Quarter: 2016Q2

REPORT INFORMATION
  Report Type: Report from Study
  Country: US (occurrence: US)
  Receive Date: 20160413
  Receipt Date: 20160426
  Transmission Date: 20160815
  Serious: Yes (Death, Hospitalization, Other)
  Sender: FDA-Public Use
  Company Number: US-B.I. PHARMACEUTICALS,INC./RIDGEFIELD-2016-BI-15590BI

PATIENT
  Age: 79 Year
  Sex: Female

DRUGS (11)
  1. SENOKOT [Concomitant]
     Active Substance: SENNOSIDES
     Indication: CONSTIPATION
     Route: 065
  2. GILOTRIF [Suspect]
     Active Substance: AFATINIB
     Indication: NON-SMALL CELL LUNG CANCER
     Dosage: 40 MG
     Route: 048
     Dates: start: 20160304
  3. SERTRALINE [Concomitant]
     Active Substance: SERTRALINE HYDROCHLORIDE
     Indication: DEPRESSION
     Route: 065
  4. D 3 [Concomitant]
     Indication: SUPPLEMENTATION THERAPY
     Route: 065
  5. CITRA CAL [Concomitant]
     Indication: SUPPLEMENTATION THERAPY
     Route: 065
  6. CENTRUM VITAMIN [Concomitant]
     Indication: SUPPLEMENTATION THERAPY
     Route: 065
  7. SERTRALINE [Concomitant]
     Active Substance: SERTRALINE HYDROCHLORIDE
     Indication: ANXIETY
  8. GILOTRIF [Suspect]
     Active Substance: AFATINIB
     Dosage: 40 MG
     Route: 048
     Dates: start: 20160307, end: 20160327
  9. PREDNISONE. [Suspect]
     Active Substance: PREDNISONE
     Indication: PRODUCT USED FOR UNKNOWN INDICATION
     Route: 065
  10. KEPPRA [Concomitant]
     Active Substance: LEVETIRACETAM
     Indication: PRODUCT USED FOR UNKNOWN INDICATION
     Route: 065
  11. DEXAMETHASONE. [Concomitant]
     Active Substance: DEXAMETHASONE
     Indication: CHEMOTHERAPY
     Route: 065

REACTIONS (20)
  - Decreased appetite [Not Recovered/Not Resolved]
  - Hordeolum [Not Recovered/Not Resolved]
  - Diarrhoea [Unknown]
  - Rash pustular [Not Recovered/Not Resolved]
  - Intestinal perforation [Fatal]
  - Dyspnoea [Unknown]
  - Urinary tract infection [Not Recovered/Not Resolved]
  - Rash [Not Recovered/Not Resolved]
  - Spinal pain [Not Recovered/Not Resolved]
  - Diarrhoea [Recovered/Resolved]
  - Mental status changes [Unknown]
  - Skin exfoliation [Not Recovered/Not Resolved]
  - Rash [Unknown]
  - Rash [Recovered/Resolved]
  - Chest pain [Unknown]
  - Pulmonary embolism [Not Recovered/Not Resolved]
  - Staphylococcal infection [Not Recovered/Not Resolved]
  - Blood potassium decreased [Recovered/Resolved]
  - Pruritus [Not Recovered/Not Resolved]
  - Disorientation [Recovered/Resolved]

NARRATIVE: CASE EVENT DATE: 20160307
